FAERS Safety Report 7800963-8 (Version None)
Quarter: 2011Q4

REPORT INFORMATION
  Report Type: 
  Country: None (occurrence: None)
  Receive Date: 20111007
  Receipt Date: 20111004
  Transmission Date: 20120403
  Serious: Yes (Hospitalization)
  Sender: FDA-Public Use
  Company Number: US-BRISTOL-MYERS SQUIBB COMPANY-13465539

PATIENT
  Age: 41 Year
  Sex: Male
  Weight: 87 kg

DRUGS (2)
  1. CISPLATIN [Suspect]
     Indication: PHARYNGEAL CANCER STAGE UNSPECIFIED
     Route: 042
     Dates: start: 20060620, end: 20060710
  2. MORPHINE [Concomitant]

REACTIONS (4)
  - STOMATITIS [None]
  - PHARYNGEAL STENOSIS [None]
  - FEBRILE NEUTROPENIA [None]
  - PHARYNGEAL INFLAMMATION [None]
